FAERS Safety Report 5702596-6 (Version None)
Quarter: 2008Q2

REPORT INFORMATION
  Report Type: 
  Country: None (occurrence: None)
  Receive Date: 20080410
  Receipt Date: 20080410
  Transmission Date: 20081010
  Serious: Yes (Other)
  Sender: FDA-Public Use
  Company Number: None

PATIENT
  Age: 65 Year
  Sex: Female
  Weight: 60.782 kg

DRUGS (2)
  1. DILTIAZEM [Suspect]
     Indication: HYPERTENSION
     Dosage: 120MG ONCE A DAY PO
     Route: 048
     Dates: start: 20080404, end: 20080408
  2. DILTIAZEM [Suspect]
     Indication: RAYNAUD'S PHENOMENON
     Dosage: 120MG ONCE A DAY PO
     Route: 048
     Dates: start: 20080404, end: 20080408

REACTIONS (3)
  - BLOOD PRESSURE FLUCTUATION [None]
  - DERMATITIS ALLERGIC [None]
  - PHARMACEUTICAL PRODUCT COMPLAINT [None]
